FAERS Safety Report 9171055 (Version 1)
Quarter: 2013Q1

REPORT INFORMATION
  Report Type: Spontaneous
  Country: US (occurrence: None)
  Receive Date: 20130315
  Receipt Date: 20130315
  Transmission Date: 20140127
  Serious: Yes (Death)
  Sender: FDA-Public Use
  Company Number: SYM-2013-01492

PATIENT
  Age: 66 Year
  Sex: Female

DRUGS (1)
  1. XENAZINE(TETRABENAZINE) (UNKNOWN) (TETRABENAZINE) [Suspect]
     Indication: HUNTINGTON^S DISEASE
     Dosage: 12.5 MG IN THE MORNING AND 50MG IN THE AFTERNOON, ORAL
     Route: 048

REACTIONS (1)
  - Death [None]
